FAERS Safety Report 18396295 (Version 1)
Quarter: 2020Q4

REPORT INFORMATION
  Report Type: Spontaneous
  Country: IN (occurrence: IN)
  Receive Date: 20201019
  Receipt Date: 20201019
  Transmission Date: 20210114
  Serious: Yes (Life-Threatening, Hospitalization, Other)
  Sender: FDA-Public Use
  Company Number: IN-SUN PHARMACEUTICAL INDUSTRIES LTD-2020R1-264181

PATIENT
  Age: 66 Year
  Sex: Male

DRUGS (1)
  1. AMLODIPINE AND ATENOLOL [Suspect]
     Active Substance: AMLODIPINE BESYLATE\ATENOLOL
     Indication: HYPERTENSION
     Dosage: 25 TABLETS
     Route: 065
     Dates: start: 20161102

REACTIONS (9)
  - Palpitations [Recovering/Resolving]
  - Vomiting [Recovering/Resolving]
  - Cardiac arrest [Recovering/Resolving]
  - Overdose [Recovering/Resolving]
  - Fall [Recovering/Resolving]
  - Sinus bradycardia [Recovering/Resolving]
  - Dyspnoea [Recovering/Resolving]
  - Shock [Recovering/Resolving]
  - Urine output decreased [Recovering/Resolving]
